FAERS Safety Report 17571496 (Version 1)
Quarter: 2020Q1

REPORT INFORMATION
  Report Type: Spontaneous
  Country: US (occurrence: US)
  Receive Date: 20200323
  Receipt Date: 20200323
  Transmission Date: 20200409
  Serious: No
  Sender: FDA-Public Use
  Company Number: US-BAYER-2020-043307

PATIENT
  Age: 88 Year
  Sex: Female

DRUGS (5)
  1. CLARITIN [Suspect]
     Active Substance: LORATADINE
     Indication: NASOPHARYNGITIS
  2. CLARITIN [Suspect]
     Active Substance: LORATADINE
     Indication: HYPERSENSITIVITY
     Dosage: 1 DF
     Route: 048
     Dates: start: 20190823
  3. MELOXICAM. [Concomitant]
     Active Substance: MELOXICAM
  4. CLARITIN [Suspect]
     Active Substance: LORATADINE
     Indication: COUGH
  5. CLARITIN [Suspect]
     Active Substance: LORATADINE
     Indication: OROPHARYNGEAL PAIN

REACTIONS (5)
  - Product use in unapproved indication [Unknown]
  - Symptom recurrence [Unknown]
  - Discomfort [Unknown]
  - Pain [Unknown]
  - Therapeutic response shortened [Unknown]
